FAERS Safety Report 17577550 (Version 1)
Quarter: 2020Q1

REPORT INFORMATION
  Report Type: Spontaneous
  Country: US (occurrence: US)
  Receive Date: 20200324
  Receipt Date: 20200324
  Transmission Date: 20200409
  Serious: Yes (Other)
  Sender: FDA-Public Use
  Company Number: None

PATIENT
  Age: 61 Year
  Sex: Female
  Weight: 59.4 kg

DRUGS (20)
  1. FASLODEX [Concomitant]
     Active Substance: FULVESTRANT
  2. JOINT HEALTH [Concomitant]
  3. CALCIUM +D3 [Concomitant]
     Active Substance: CALCIUM\CHOLECALCIFEROL
  4. MAGNESIUM COMPLEX [Concomitant]
  5. ASPIRIN LOW DOSE [Concomitant]
     Active Substance: ASPIRIN
  6. CURCUMIN [Concomitant]
     Active Substance: CURCUMIN
  7. MEGACO-B [Concomitant]
  8. LISINOPRIL. [Concomitant]
     Active Substance: LISINOPRIL
  9. GENTLE IRON [Concomitant]
  10. PRENATAL VITAMINS [Concomitant]
     Active Substance: VITAMINS
  11. VITAMIN C [Concomitant]
     Active Substance: ASCORBIC ACID
  12. DEMULCENT LIQUID [Concomitant]
  13. CAPECITABINE. [Suspect]
     Active Substance: CAPECITABINE
     Indication: BREAST CANCER
     Route: 048
     Dates: start: 20200304
  14. NOVOLOG [Concomitant]
     Active Substance: INSULIN ASPART
  15. VITAMIN D [Concomitant]
     Active Substance: VITAMIN D NOS
  16. LIQUID VITAMIN D [Concomitant]
  17. OSTEOVERSE [Concomitant]
  18. XGEVA [Concomitant]
     Active Substance: DENOSUMAB
  19. PROBIOTICS [Concomitant]
     Active Substance: PROBIOTICS NOS
  20. HYDROCODONE-ACETAMINOPHEN [Concomitant]
     Active Substance: ACETAMINOPHEN\HYDROCODONE

REACTIONS (1)
  - Sinus congestion [None]

NARRATIVE: CASE EVENT DATE: 20200322
